FAERS Safety Report 9457232 (Version 1)
Quarter: 2013Q3

REPORT INFORMATION
  Report Type: Spontaneous
  Country: US (occurrence: US)
  Receive Date: 20130814
  Receipt Date: 20130814
  Transmission Date: 20140515
  Serious: Yes (Death)
  Sender: FDA-Public Use
  Company Number: US-BRISTOL-MYERS SQUIBB COMPANY-19163641

PATIENT
  Age: 78 Year
  Sex: Male

DRUGS (11)
  1. SPRYCEL [Suspect]
  2. FISH OIL [Concomitant]
  3. FOLIC ACID [Concomitant]
  4. LASIX [Concomitant]
  5. LISINOPRIL [Concomitant]
  6. MEGACE [Concomitant]
  7. METOPROLOL [Concomitant]
  8. MULTIVITAMIN [Concomitant]
  9. VITAMIN C [Concomitant]
  10. VITAMIN D [Concomitant]
  11. TAMSULOSIN [Concomitant]

REACTIONS (1)
  - Death [Fatal]
